FAERS Safety Report 13285919 (Version 1)
Quarter: 2017Q1

REPORT INFORMATION
  Report Type: Spontaneous
  Country: US (occurrence: US)
  Receive Date: 20170302
  Receipt Date: 20170302
  Transmission Date: 20170428
  Serious: No
  Sender: FDA-Public Use
  Company Number: None

PATIENT
  Age: 60 Year
  Sex: Female

DRUGS (4)
  1. FORTEO [Suspect]
     Active Substance: TERIPARATIDE
     Indication: OSTEOPOROSIS
  2. FORTEO [Suspect]
     Active Substance: TERIPARATIDE
     Indication: HYPOTHYROIDISM
  3. FORTEO [Suspect]
     Active Substance: TERIPARATIDE
     Indication: MYASTHENIA GRAVIS
  4. FORTEO [Suspect]
     Active Substance: TERIPARATIDE
     Indication: TYPE 2 DIABETES MELLITUS

REACTIONS (2)
  - Dizziness [None]
  - Constipation [None]

NARRATIVE: CASE EVENT DATE: 20170201
